FAERS Safety Report 12500880 (Version 7)
Quarter: 2017Q3

REPORT INFORMATION
  Report Type: Spontaneous
  Country: US (occurrence: US)
  Receive Date: 20160627
  Receipt Date: 20170810
  Transmission Date: 20171127
  Serious: Yes (Other)
  Sender: FDA-Public Use
  Company Number: US-AKORN PHARMACEUTICALS-2016AKN00380

PATIENT
  Age: 19 Year
  Sex: Female

DRUGS (2)
  1. BIRTH CONTROL PILLS/COMBINATION ORAL CONTRACEPTIVE [Concomitant]
     Route: 048
  2. MYORISAN [Suspect]
     Active Substance: ISOTRETINOIN
     Dosage: 80 MG, 1X/DAY
     Dates: start: 20151216, end: 20160411

REACTIONS (1)
  - Maternal exposure before pregnancy [Recovered/Resolved]

NARRATIVE: CASE EVENT DATE: 20160425
